FAERS Safety Report 11825423 (Version 1)
Quarter: 2015Q4

REPORT INFORMATION
  Report Type: Spontaneous
  Country: US (occurrence: US)
  Receive Date: 20151211
  Receipt Date: 20151211
  Transmission Date: 20160305
  Serious: No
  Sender: FDA-Public Use
  Company Number: PHEH2015US025190

PATIENT
  Sex: Female

DRUGS (1)
  1. GILENYA [Suspect]
     Active Substance: FINGOLIMOD HYDROCHLORIDE
     Indication: PRODUCT USED FOR UNKNOWN INDICATION
     Dosage: 0.5 MG, UNK
     Route: 065
     Dates: start: 20110622

REACTIONS (6)
  - Multiple sclerosis relapse [Unknown]
  - Feeling abnormal [Unknown]
  - Dysarthria [Unknown]
  - Tongue disorder [Unknown]
  - Dysgraphia [Unknown]
  - Musculoskeletal disorder [Unknown]
